FAERS Safety Report 15949807 (Version 5)
Quarter: 2019Q4

REPORT INFORMATION
  Report Type: Report from Study
  Country: US (occurrence: US)
  Receive Date: 20190211
  Receipt Date: 20191010
  Transmission Date: 20200122
  Serious: Yes (Other)
  Sender: FDA-Public Use
  Company Number: US-PFIZER INC-2019046471

PATIENT
  Age: 86 Year
  Sex: Male

DRUGS (2)
  1. XELJANZ XR [Suspect]
     Active Substance: TOFACITINIB CITRATE
     Indication: RHEUMATOID ARTHRITIS
     Dosage: 11 MG, 1X/DAY
     Route: 048
     Dates: start: 20190129, end: 20190210
  2. XELJANZ XR [Suspect]
     Active Substance: TOFACITINIB CITRATE
     Dosage: 11 MG, 1X/DAY
     Route: 048
     Dates: start: 20190215

REACTIONS (5)
  - Vomiting [Unknown]
  - Nausea [Unknown]
  - Mycobacterium tuberculosis complex test positive [Unknown]
  - Therapeutic product effect incomplete [Unknown]
  - Fungal oesophagitis [Not Recovered/Not Resolved]

NARRATIVE: CASE EVENT DATE: 20190129
